FAERS Safety Report 7250999-3 (Version None)
Quarter: 2011Q1

REPORT INFORMATION
  Report Type: 
  Country: None (occurrence: None)
  Receive Date: 20110128
  Receipt Date: 20110124
  Transmission Date: 20110831
  Serious: Yes (Hospitalization)
  Sender: FDA-Public Use
  Company Number: B0695989A

PATIENT
  Age: 52 Year
  Sex: Male

DRUGS (2)
  1. AVANDARYL [Suspect]
     Route: 048
     Dates: end: 20091001
  2. AVANDIA [Suspect]
     Dosage: 8MG PER DAY
     Route: 048

REACTIONS (2)
  - MYOCARDIAL INFARCTION [None]
  - CORONARY ARTERIAL STENT INSERTION [None]
